FAERS Safety Report 11106443 (Version 1)
Quarter: 2015Q2

REPORT INFORMATION
  Report Type: Spontaneous
  Country: US (occurrence: US)
  Receive Date: 20150512
  Receipt Date: 20150512
  Transmission Date: 20150821
  Serious: Yes (Other)
  Sender: FDA-Public Use
  Company Number: US-TEVA-560328USA

PATIENT
  Age: 77 Year
  Sex: Male

DRUGS (3)
  1. ENOXAPARIN [Concomitant]
     Active Substance: ENOXAPARIN
     Indication: THROMBOSIS
     Route: 065
     Dates: start: 201410
  2. DEXAMETHASONE. [Suspect]
     Active Substance: DEXAMETHASONE
     Route: 065
     Dates: start: 201407
  3. HYDROCHLOROTHIAZIDE. [Suspect]
     Active Substance: HYDROCHLOROTHIAZIDE
     Indication: PERIPHERAL SWELLING
     Route: 065
     Dates: start: 201407

REACTIONS (7)
  - Abasia [Unknown]
  - Depressed level of consciousness [Unknown]
  - Hypokinesia [Unknown]
  - Thrombosis [Unknown]
  - Catatonia [Unknown]
  - Peripheral swelling [Unknown]
  - Brain operation [Unknown]
